FAERS Safety Report 10179131 (Version 3)
Quarter: 2014Q3

REPORT INFORMATION
  Report Type: Spontaneous
  Country: JP (occurrence: JP)
  Receive Date: 20140519
  Receipt Date: 20140801
  Transmission Date: 20150326
  Serious: Yes (Other)
  Sender: FDA-Public Use
  Company Number: JP-PFIZER INC-2014131603

PATIENT
  Age: 61 Year
  Sex: Male

DRUGS (16)
  1. CAMPTO [Suspect]
     Active Substance: IRINOTECAN
     Indication: METASTASES TO LIVER
  2. TS-1 [Concomitant]
     Active Substance: GIMERACIL\OTERACIL POTASSIUM\TEGAFUR
     Indication: RECTAL CANCER
     Dosage: 80 MG, 1X/DAY (TOTAL OF 4 CYCLES).
  3. VECTIBIX [Concomitant]
     Active Substance: PANITUMUMAB
     Indication: RECTAL CANCER
  4. CAMPTO [Suspect]
     Active Substance: IRINOTECAN
     Indication: RECTAL CANCER
     Dosage: 160 MG, 1X/DAY, (TOTAL OF 19 CYCLES).
     Route: 041
  5. ELPLAT [Suspect]
     Active Substance: OXALIPLATIN
     Dosage: 150 MG, 1X/DAY (TOTAL OF 8 CYCLES)
     Route: 041
  6. ELPLAT [Suspect]
     Active Substance: OXALIPLATIN
     Dosage: 50 MG
  7. XELODA [Concomitant]
     Active Substance: CAPECITABINE
     Indication: METASTASES TO LIVER
  8. VECTIBIX [Concomitant]
     Active Substance: PANITUMUMAB
     Indication: METASTASES TO LIVER
     Dosage: 200 MG, CYCLIC (TOTAL OF 19 CYCLES).
  9. TS-1 [Concomitant]
     Active Substance: GIMERACIL\OTERACIL POTASSIUM\TEGAFUR
     Indication: METASTASES TO LIVER
     Dosage: 100 MG, 1X/DAY (TOTAL OF 6 CYCLES)
  10. AVASTIN [Concomitant]
     Active Substance: BEVACIZUMAB
     Indication: RECTAL CANCER
     Dosage: 400 MG, CYCLIC (TOTAL OF 6 CYCLES).
  11. XELODA [Concomitant]
     Active Substance: CAPECITABINE
     Indication: RECTAL CANCER
     Dosage: 3000 MG, 1X/DAY (TOTAL OF 19 CYCLES).
  12. TS-1 [Concomitant]
     Active Substance: GIMERACIL\OTERACIL POTASSIUM\TEGAFUR
     Dosage: 80 MG, 1X/DAY (TOTAL OF 8 CYCLES).
  13. AVASTIN [Concomitant]
     Active Substance: BEVACIZUMAB
     Dosage: 400 MG, CYCLIC (TOTAL OF 8 CYCLES).
  14. ELPLAT [Suspect]
     Active Substance: OXALIPLATIN
     Indication: RECTAL CANCER
     Dosage: 200 MG, 1X/DAY (TOTAL OF 6 CYCLES)
     Route: 041
  15. ELPLAT [Suspect]
     Active Substance: OXALIPLATIN
     Indication: METASTASES TO LIVER
     Dosage: 150 MG, 1X/DAY (TOTAL OF 4 CYCLES).
     Route: 041
  16. AVASTIN [Concomitant]
     Active Substance: BEVACIZUMAB
     Indication: METASTASES TO LIVER
     Dosage: 300 MG, CYCLIC (TOTAL OF 4 CYCLES).

REACTIONS (6)
  - Stomatitis [Unknown]
  - Decreased appetite [Recovering/Resolving]
  - Neuropathy peripheral [Recovering/Resolving]
  - Muscular weakness [Unknown]
  - Diarrhoea [Unknown]
  - Malaise [Unknown]
